FAERS Safety Report 8889039 (Version 1)
Quarter: 2012Q4

REPORT INFORMATION
  Report Type: 
  Country: EE (occurrence: HR)
  Receive Date: 20121106
  Receipt Date: 20121106
  Transmission Date: 20130627
  Serious: Yes (Hospitalization)
  Sender: FDA-Public Use
  Company Number: HR-BRISTOL-MYERS SQUIBB COMPANY-17078619

PATIENT
  Age: 74 Year
  Sex: Female
  Weight: 80 kg

DRUGS (1)
  1. VEPESID [Suspect]
     Indication: OVARIAN CANCER
     Route: 048
     Dates: start: 20120724, end: 20120805

REACTIONS (3)
  - Febrile neutropenia [Recovered/Resolved]
  - Cough [Recovered/Resolved]
  - Dyspnoea [Recovered/Resolved]
